FAERS Safety Report 25189619 (Version 1)
Quarter: 2025Q2

REPORT INFORMATION
  Report Type: Spontaneous
  Country: ES (occurrence: ES)
  Receive Date: 20250411
  Receipt Date: 20250411
  Transmission Date: 20250717
  Serious: Yes (Hospitalization)
  Sender: ACCORD
  Company Number: None

PATIENT
  Age: 84 Year
  Sex: Male

DRUGS (1)
  1. PACLITAXEL [Interacting]
     Active Substance: PACLITAXEL
     Indication: Invasive breast carcinoma
     Dates: start: 20240325, end: 20240617

REACTIONS (3)
  - Cardiac failure chronic [Not Recovered/Not Resolved]
  - Cardiac failure acute [Recovered/Resolved with Sequelae]
  - Concomitant disease aggravated [Recovered/Resolved with Sequelae]

NARRATIVE: CASE EVENT DATE: 20240817
